FAERS Safety Report 17143117 (Version 1)
Quarter: 2019Q4

REPORT INFORMATION
  Report Type: Report from Study
  Country: RO (occurrence: RO)
  Receive Date: 20191212
  Receipt Date: 20191212
  Transmission Date: 20200122
  Serious: Yes (Hospitalization)
  Sender: FDA-Public Use
  Company Number: RO-GILEAD-2019-0442374

PATIENT
  Age: 62 Year
  Sex: Female

DRUGS (12)
  1. SORTIS [Concomitant]
     Active Substance: ATORVASTATIN
  2. LEDIPASVIR/SOFOSBUVIR [Suspect]
     Active Substance: LEDIPASVIR\SOFOSBUVIR
     Indication: HEPATIC CIRRHOSIS
  3. OMEPRAZOL A [Concomitant]
     Dosage: 2 DOSAGE FORM, QD
     Route: 048
  4. PREDUCTAL [Concomitant]
     Active Substance: TRIMETAZIDINE DIHYDROCHLORIDE
  5. CLEXANE [Concomitant]
     Active Substance: ENOXAPARIN SODIUM
  6. LEDIPASVIR/SOFOSBUVIR [Suspect]
     Active Substance: LEDIPASVIR\SOFOSBUVIR
     Indication: HEPATITIS C
     Dosage: 1 DOSAGE FORM, QD
     Route: 048
     Dates: start: 20190701
  7. LIPANTIL [Concomitant]
     Active Substance: FENOFIBRATE
  8. NEBILET [Concomitant]
     Active Substance: NEBIVOLOL
  9. ASPIRIN CARDIO [Concomitant]
     Active Substance: ASPIRIN
  10. PLAVIX [Concomitant]
     Active Substance: CLOPIDOGREL BISULFATE
  11. ATACAND [Concomitant]
     Active Substance: CANDESARTAN CILEXETIL
  12. TERTENSIF [Concomitant]
     Active Substance: INDAPAMIDE

REACTIONS (1)
  - Lung neoplasm [Not Recovered/Not Resolved]

NARRATIVE: CASE EVENT DATE: 20191008
